FAERS Safety Report 7644916-1 (Version None)
Quarter: 2011Q3

REPORT INFORMATION
  Report Type: 
  Country: None (occurrence: None)
  Receive Date: 20110729
  Receipt Date: 20110708
  Transmission Date: 20111222
  Serious: Yes (Hospitalization)
  Sender: FDA-Public Use
  Company Number: US-GLAXOSMITHKLINE-A0748263A

PATIENT
  Age: 70 Year
  Sex: Male
  Weight: 120.5 kg

DRUGS (14)
  1. HYDROCHLOROTHIAZIDE [Concomitant]
     Dates: start: 19970101, end: 20070301
  2. FEXOFENADINE [Concomitant]
  3. LEVOTHYROXINE SODIUM [Concomitant]
  4. PRILOSEC [Concomitant]
  5. TRIAMTERENE [Concomitant]
  6. METFORMIN HCL [Concomitant]
     Dates: end: 20070320
  7. XANAX [Concomitant]
     Dates: start: 19860101, end: 20050101
  8. SERTRALINE HYDROCHLORIDE [Concomitant]
     Dates: end: 20070320
  9. LISINOPRIL [Concomitant]
     Dates: end: 20070320
  10. COREG [Concomitant]
     Dates: end: 20070320
  11. AVANDIA [Suspect]
     Indication: DIABETES MELLITUS
     Dosage: 8MG PER DAY
     Route: 048
     Dates: start: 20040201, end: 20070320
  12. PROPRANOLOL [Concomitant]
     Dates: start: 19880101
  13. ALLOPURINOL [Concomitant]
  14. MAXZIDE [Concomitant]
     Dates: end: 20070320

REACTIONS (5)
  - RENAL FAILURE [None]
  - CARDIAC FAILURE CONGESTIVE [None]
  - HEPATIC FAILURE [None]
  - CARDIAC FAILURE [None]
  - HEART INJURY [None]
